FAERS Safety Report 7301791-2 (Version None)
Quarter: 2011Q1

REPORT INFORMATION
  Report Type: 
  Country: None (occurrence: None)
  Receive Date: 20110218
  Receipt Date: 20110211
  Transmission Date: 20110831
  Serious: Yes (Hospitalization)
  Sender: FDA-Public Use
  Company Number: B0691595A

PATIENT
  Sex: Female

DRUGS (14)
  1. CETIRIZINE [Concomitant]
  2. PLAVIX [Concomitant]
  3. GABAPENTIN [Concomitant]
  4. CHLORHEXIDINE GLUCONATE [Concomitant]
  5. INSULIN [Suspect]
     Indication: DIABETES MELLITUS
     Route: 065
  6. ASPEGIC 325 [Concomitant]
  7. BETNEVAL [Concomitant]
  8. SORIATANE [Suspect]
     Indication: ERYTHRODERMIC PSORIASIS
     Dosage: 30MG PER DAY
     Route: 048
     Dates: start: 20101208
  9. AMLODIPINE [Concomitant]
  10. SECTRAL [Concomitant]
  11. VASTAREL [Concomitant]
  12. VASELINE [Concomitant]
  13. DISCOTRINE [Concomitant]
  14. UNKNOWN [Concomitant]

REACTIONS (2)
  - DRUG INTERACTION [None]
  - HYPOGLYCAEMIA [None]
